FAERS Safety Report 24841558 (Version 2)
Quarter: 2025Q1

REPORT INFORMATION
  Report Type: Spontaneous
  Country: DE (occurrence: DE)
  Receive Date: 20250114
  Receipt Date: 20250310
  Transmission Date: 20250409
  Serious: Yes (Hospitalization, Other)
  Sender: MERCK SHARP & DOHME LLC
  Company Number: DE-009507513-2501DEU002007

PATIENT
  Age: 22 Year
  Sex: Female

DRUGS (8)
  1. PEMBROLIZUMAB [Suspect]
     Active Substance: PEMBROLIZUMAB
     Indication: Adrenocortical carcinoma
     Route: 042
     Dates: start: 20211015, end: 20230224
  2. HYDROCORTISONE [Concomitant]
     Active Substance: HYDROCORTISONE
     Indication: Secondary adrenocortical insufficiency
     Dates: start: 202008
  3. HYDROCORTISONE [Concomitant]
     Active Substance: HYDROCORTISONE
     Indication: Secondary adrenocortical insufficiency
     Dosage: DOSE DESCRIPTION : 50 MILLIGRAM, QD?DAILY DOSE : 50 MILLIGRAM
     Route: 048
  4. HYDROCORTISONE [Concomitant]
     Active Substance: HYDROCORTISONE
     Indication: Secondary adrenocortical insufficiency
     Dosage: DOSE DESCRIPTION : 30 MILLIGRAM, QD?DAILY DOSE : 30 MILLIGRAM
     Route: 048
  5. FLUDROCORTISONE [Concomitant]
     Active Substance: FLUDROCORTISONE
     Indication: Secondary adrenocortical insufficiency
     Dates: start: 202008
  6. FLUDROCORTISONE [Concomitant]
     Active Substance: FLUDROCORTISONE
     Indication: Secondary adrenocortical insufficiency
     Dosage: DOSE DESCRIPTION : 0.15 MILLIGRAM, QD?DAILY DOSE : 0.15 MILLIGRAM
  7. VITAMIN D [Concomitant]
     Active Substance: VITAMIN D NOS
  8. VITAMIN B12 [Concomitant]
     Active Substance: CYANOCOBALAMIN

REACTIONS (8)
  - Capillary leak syndrome [Recovered/Resolved]
  - Immune-mediated polyserositis [Recovering/Resolving]
  - Immune-mediated gastritis [Recovered/Resolved]
  - Cervical dysplasia [Not Recovered/Not Resolved]
  - Immune-mediated enterocolitis [Recovering/Resolving]
  - Product use in unapproved indication [Unknown]
  - Malignant neoplasm progression [Unknown]
  - Helicobacter gastritis [Recovered/Resolved]

NARRATIVE: CASE EVENT DATE: 20220401
